FAERS Safety Report 14572790 (Version 1)
Quarter: 2018Q1

REPORT INFORMATION
  Report Type: Spontaneous
  Country: US (occurrence: US)
  Receive Date: 20180221
  Receipt Date: 20180221
  Transmission Date: 20180509
  Serious: Yes (Other)
  Sender: FDA-Public Use
  Company Number: None

PATIENT
  Age: 53 Year
  Sex: Female
  Weight: 86.4 kg

DRUGS (5)
  1. BENZTROPINE. [Concomitant]
     Active Substance: BENZTROPINE
  2. INVEGA SUSTENNA [Suspect]
     Active Substance: PALIPERIDONE PALMITATE
     Indication: BIPOLAR DISORDER
     Dosage: ?          OTHER FREQUENCY:MONTHLY;?
     Route: 030
     Dates: start: 20171026, end: 20180221
  3. BUSPAR [Concomitant]
     Active Substance: BUSPIRONE HYDROCHLORIDE
  4. SYNTHROID [Concomitant]
     Active Substance: LEVOTHYROXINE SODIUM
  5. TRILEPTAL [Concomitant]
     Active Substance: OXCARBAZEPINE

REACTIONS (1)
  - Aphonia [None]

NARRATIVE: CASE EVENT DATE: 20180218
